FAERS Safety Report 24575136 (Version 2)
Quarter: 2025Q1

REPORT INFORMATION
  Report Type: Spontaneous
  Country: MX (occurrence: MX)
  Receive Date: 20241104
  Receipt Date: 20250124
  Transmission Date: 20250408
  Serious: Yes (Other)
  Sender: THEA PHARMA INC.
  Company Number: MX-THEA-2024002424

PATIENT
  Age: 78 Year
  Sex: Female

DRUGS (5)
  1. LATANOPROST [Suspect]
     Active Substance: LATANOPROST
     Indication: Glaucoma
     Dosage: 1 DROP/ 24H IN LEFT EYE
     Route: 047
     Dates: start: 202402, end: 20241013
  2. LATANOPROST [Suspect]
     Active Substance: LATANOPROST
     Indication: Glaucoma
     Dosage: 1 DROP/ 24H IN LEFT EYE
     Route: 047
     Dates: start: 20241021
  3. IDAPTAN/OD  (80mg) [Concomitant]
     Indication: Arteriosclerosis
     Dosage: 1 CAPSULE / 24 HOURS
     Route: 048
     Dates: start: 2022
  4. ASPIRIN [Concomitant]
     Active Substance: ASPIRIN
     Indication: Arteriosclerosis
     Dosage: 1 TABLET / 24 HOURS
     Route: 048
     Dates: start: 2022
  5. Lubricant (Eyestil  plus) [Concomitant]
     Indication: Dry eye
     Route: 047
     Dates: start: 202402

REACTIONS (9)
  - Nephrolithiasis [Not Recovered/Not Resolved]
  - Gastritis haemorrhagic [Not Recovered/Not Resolved]
  - Cholelithiasis obstructive [Not Recovered/Not Resolved]
  - Depression [Not Recovered/Not Resolved]
  - Cough [Not Recovered/Not Resolved]
  - Urinary incontinence [Not Recovered/Not Resolved]
  - Anal incontinence [Not Recovered/Not Resolved]
  - Exposure via mucosa [Unknown]
  - Product after taste [Unknown]

NARRATIVE: CASE EVENT DATE: 20240201
